FAERS Safety Report 5090641-3 (Version None)
Quarter: 2006Q3

REPORT INFORMATION
  Report Type: 
  Country: None (occurrence: None)
  Receive Date: 20060823
  Receipt Date: 20060810
  Transmission Date: 20061208
  Serious: Yes (Hospitalization)
  Sender: FDA-Public Use
  Company Number: USA-2006-0024893

PATIENT
  Age: 68 Year
  Sex: Male

DRUGS (4)
  1. MS CONTIN [Suspect]
     Indication: PAIN
     Dosage: SEE IMAGE
     Dates: start: 20010101
  2. BACLOFEN [Suspect]
     Indication: DRUG USE FOR UNKNOWN INDICATION
  3. GLYBURIDE [Suspect]
     Indication: DRUG USE FOR UNKNOWN INDICATION
  4. COLACE CAPSULES (DOCUSATE SODIUM) CAPSULE, SOFT [Concomitant]

REACTIONS (3)
  - CONSTIPATION [None]
  - DIAGNOSTIC PROCEDURE [None]
  - PAIN [None]
